FAERS Safety Report 23080610 (Version 5)
Quarter: 2025Q1

REPORT INFORMATION
  Report Type: Spontaneous
  Country: US (occurrence: US)
  Receive Date: 20231018
  Receipt Date: 20250106
  Transmission Date: 20250409
  Serious: Yes (Other)
  Sender: PFIZER
  Company Number: US-PFIZER INC-PV202300170111

PATIENT
  Age: 77 Year
  Sex: Female
  Weight: 112.1 kg

DRUGS (17)
  1. IBRANCE [Suspect]
     Active Substance: PALBOCICLIB
     Indication: Breast cancer metastatic
     Route: 048
     Dates: start: 20230602
  2. IBRANCE [Suspect]
     Active Substance: PALBOCICLIB
     Indication: Metastases to breast
     Route: 048
  3. FASLODEX [Concomitant]
     Active Substance: FULVESTRANT
  4. IRON [Concomitant]
     Active Substance: IRON
  5. MAGNESIUM [Concomitant]
     Active Substance: MAGNESIUM
  6. POTASSIUM [Concomitant]
     Active Substance: POTASSIUM
  7. VITAMIN B12 [Concomitant]
     Active Substance: CYANOCOBALAMIN
  8. VITAMIN C [Concomitant]
     Active Substance: ASCORBIC ACID
  9. VITAMIN D NOS [Concomitant]
     Active Substance: CHOLECALCIFEROL\ERGOCALCIFEROL
  10. MONTELUKAST [Concomitant]
     Active Substance: MONTELUKAST
  11. SPIRIVA RESPIMAT [Concomitant]
     Active Substance: TIOTROPIUM BROMIDE
  12. WIXELA INHUB [Concomitant]
     Active Substance: FLUTICASONE PROPIONATE\SALMETEROL XINAFOATE
  13. ELIQUIS [Concomitant]
     Active Substance: APIXABAN
  14. LISINOPRIL [Concomitant]
     Active Substance: LISINOPRIL
  15. SOTALOL [Concomitant]
     Active Substance: SOTALOL
  16. METHENAMINE HIPPURATE [Concomitant]
     Active Substance: METHENAMINE HIPPURATE
  17. DULOXETINE [Concomitant]
     Active Substance: DULOXETINE

REACTIONS (2)
  - Pneumonia [Recovered/Resolved]
  - Sleep apnoea syndrome [Unknown]
